FAERS Safety Report 8118549-7 (Version None)
Quarter: 2012Q1

REPORT INFORMATION
  Report Type: 
  Country: None (occurrence: None)
  Receive Date: 20120207
  Receipt Date: 20120204
  Transmission Date: 20120608
  Serious: No
  Sender: FDA-Public Use
  Company Number: US-TEVA-321125USA

PATIENT
  Sex: Female
  Weight: 59.928 kg

DRUGS (2)
  1. PLAN B ONE-STEP [Suspect]
     Indication: POST COITAL CONTRACEPTION
     Dosage: 1.5 MILLIGRAM;
     Route: 048
     Dates: start: 20120125, end: 20120125
  2. PLAN B ONE-STEP [Suspect]
     Dosage: 1.5 MILLIGRAM;
     Route: 048
     Dates: start: 20120201, end: 20120201

REACTIONS (5)
  - HUNGER [None]
  - HYPOAESTHESIA [None]
  - FATIGUE [None]
  - THIRST [None]
  - DIZZINESS [None]
